FAERS Safety Report 4527218-1 (Version None)
Quarter: 2004Q4

REPORT INFORMATION
  Report Type: 
  Country: None (occurrence: None)
  Receive Date: 20041215
  Receipt Date: 20041202
  Transmission Date: 20050328
  Serious: Yes (Other)
  Sender: FDA-Public Use
  Company Number: PHEH2004US12894

PATIENT
  Age: 73 Year
  Sex: Female

DRUGS (6)
  1. MIACALCIN [Suspect]
     Dosage: 200 IU, QD
  2. COUMADIN [Concomitant]
  3. ARIMIDEX [Concomitant]
  4. SYNTHROID [Concomitant]
  5. FERROUS SULFATE TAB [Concomitant]
     Dosage: 650 MG, UNK
  6. CALCIUM [Concomitant]

REACTIONS (4)
  - BREAST CANCER [None]
  - BREAST CANCER FEMALE [None]
  - MASTECTOMY [None]
  - WEIGHT DECREASED [None]
